FAERS Safety Report 7806014-3 (Version None)
Quarter: 2011Q4

REPORT INFORMATION
  Report Type: 
  Country: None (occurrence: None)
  Receive Date: 20111011
  Receipt Date: 20111011
  Transmission Date: 20120403
  Serious: Yes (Hospitalization, Other)
  Sender: FDA-Public Use
  Company Number: PHHO2007US05646

PATIENT
  Sex: Female
  Weight: 83.9 kg

DRUGS (12)
  1. CELEXA [Concomitant]
     Indication: DEPRESSION
  2. RELPAX [Concomitant]
     Indication: HEADACHE
  3. MECLIZINE [Concomitant]
     Indication: DIZZINESS
  4. ESTROGEN NOS [Concomitant]
  5. PROVIGIL [Concomitant]
     Indication: FATIGUE
  6. NEURONTIN [Concomitant]
     Indication: NEURALGIA
  7. FOSAMAX [Concomitant]
  8. GILENYA [Suspect]
     Indication: MULTIPLE SCLEROSIS
     Dosage: 1.25 MG, UNK
     Route: 048
     Dates: start: 20070326, end: 20070326
  9. AMBIEN [Concomitant]
     Indication: SLEEP DISORDER
  10. DETROL [Concomitant]
     Indication: BLADDER DISORDER
  11. BACLOFEN [Concomitant]
     Indication: MUSCLE SPASMS
  12. AVONEX [Concomitant]

REACTIONS (3)
  - BRADYCARDIA [None]
  - HEART RATE DECREASED [None]
  - ATRIOVENTRICULAR BLOCK SECOND DEGREE [None]
